FAERS Safety Report 9298737 (Version 1)
Quarter: 2013Q2

REPORT INFORMATION
  Report Type: Report from Study
  Country: US (occurrence: US)
  Receive Date: 20130520
  Receipt Date: 20130520
  Transmission Date: 20140414
  Serious: Yes (Hospitalization, Other)
  Sender: FDA-Public Use
  Company Number: US-ROCHE-1222582

PATIENT
  Sex: 0

DRUGS (2)
  1. BEVACIZUMAB [Suspect]
     Indication: NEOPLASM MALIGNANT
     Route: 042
  2. RIDAFOROLIMUS [Suspect]
     Indication: NEOPLASM MALIGNANT
     Route: 048

REACTIONS (22)
  - Thrombocytopenia [Unknown]
  - Anaemia [Unknown]
  - Lymphopenia [Unknown]
  - Blood potassium decreased [Unknown]
  - Proteinuria [Unknown]
  - Epistaxis [Unknown]
  - Diarrhoea [Unknown]
  - Neutropenia [Unknown]
  - Vomiting [Unknown]
  - Leukopenia [Unknown]
  - Stomatitis [Unknown]
  - Abdominal pain [Unknown]
  - Hypophosphataemia [Unknown]
  - Diabetes mellitus [Unknown]
  - Hypochloraemia [Unknown]
  - Hyponatraemia [Unknown]
  - Lung infiltration [Unknown]
  - Blood albumin decreased [Unknown]
  - Hypocalcaemia [Unknown]
  - Aspartate aminotransferase increased [Unknown]
  - Blood glucose increased [Unknown]
  - Blood glucose decreased [Unknown]
